FAERS Safety Report 12461336 (Version 1)
Quarter: 2016Q2

REPORT INFORMATION
  Report Type: Spontaneous
  Country: US (occurrence: US)
  Receive Date: 20160613
  Receipt Date: 20160613
  Transmission Date: 20160815
  Serious: No
  Sender: FDA-Public Use
  Company Number: US-US WORLDMEDS, LLC-USW201509-000243

PATIENT
  Age: 70 Year
  Sex: Female
  Weight: 44.45 kg

DRUGS (7)
  1. SYNTHROID [Concomitant]
     Active Substance: LEVOTHYROXINE SODIUM
  2. REMERON [Concomitant]
     Active Substance: MIRTAZAPINE
  3. APOKYN [Suspect]
     Active Substance: APOMORPHINE HYDROCHLORIDE
     Indication: PARKINSON^S DISEASE
     Route: 058
  4. ESCITALOPRAM [Concomitant]
     Active Substance: ESCITALOPRAM OXALATE
  5. GABAPENTIN. [Concomitant]
     Active Substance: GABAPENTIN
  6. PREMPRO [Concomitant]
     Active Substance: ESTROGENS, CONJUGATED\MEDROXYPROGESTERONE ACETATE
  7. RESTORIL [Concomitant]
     Active Substance: TEMAZEPAM

REACTIONS (3)
  - Injection site haemorrhage [Recovered/Resolved]
  - Injection site bruising [Recovered/Resolved]
  - Injection site nodule [Recovered/Resolved]

NARRATIVE: CASE EVENT DATE: 20150810
